FAERS Safety Report 7340972-9 (Version None)
Quarter: 2011Q1

REPORT INFORMATION
  Report Type: 
  Country: None (occurrence: None)
  Receive Date: 20110309
  Receipt Date: 20101025
  Transmission Date: 20110831
  Serious: No
  Sender: FDA-Public Use
  Company Number: US-ABBOTT-10P-163-0681628-00

PATIENT
  Sex: Female
  Weight: 87.168 kg

DRUGS (7)
  1. MULTIVITAMIN [Concomitant]
     Indication: VITAMIN SUPPLEMENTATION
  2. LUPRON DEPOT [Suspect]
     Indication: MENORRHAGIA
     Dates: start: 20101013
  3. COUMADIN [Suspect]
     Indication: HEART VALVE REPLACEMENT
     Dates: start: 20100701
  4. LISINOPRIL [Concomitant]
     Indication: HYPERTENSION
  5. SIMVASTATIN [Concomitant]
     Indication: BLOOD CHOLESTEROL INCREASED
  6. ZYRTEC [Concomitant]
     Indication: HYPERSENSITIVITY
  7. IRON [Concomitant]
     Indication: MINERAL SUPPLEMENTATION

REACTIONS (1)
  - MENORRHAGIA [None]
